FAERS Safety Report 16537462 (Version 2)
Quarter: 2019Q3

REPORT INFORMATION
  Report Type: Report from Study
  Country: None (occurrence: US)
  Receive Date: 20190708
  Receipt Date: 20190717
  Transmission Date: 20191004
  Serious: Yes (Other)
  Sender: FDA-Public Use
  Company Number: US-ABBVIE-19K-163-2840005-00

PATIENT
  Age: 26 Year
  Sex: Female
  Weight: 147.1 kg

DRUGS (1)
  1. LUPRON DEPOT [Suspect]
     Active Substance: LEUPROLIDE ACETATE
     Indication: UTERINE HAEMORRHAGE
     Route: 030
     Dates: start: 20190604

REACTIONS (4)
  - Abdominal pain [Recovered/Resolved]
  - Intra-abdominal haemorrhage [Unknown]
  - Uterine leiomyoma [Unknown]
  - Dizziness [Recovered/Resolved]

NARRATIVE: CASE EVENT DATE: 20190620
